FAERS Safety Report 5254657-6 (Version None)
Quarter: 2007Q1

REPORT INFORMATION
  Report Type: 
  Country: None (occurrence: None)
  Receive Date: 20070302
  Receipt Date: 20070222
  Transmission Date: 20070707
  Serious: Yes (Other)
  Sender: FDA-Public Use
  Company Number: US-PFIZER INC-2007014997

PATIENT
  Sex: Male
  Weight: 88.5 kg

DRUGS (5)
  1. CHANTIX [Suspect]
     Indication: EX-SMOKER
  2. NORVASC [Suspect]
     Indication: HYPERTENSION
  3. VALSARTAN [Suspect]
     Indication: HYPERTENSION
  4. INSULIN [Concomitant]
  5. DIOVAN HCT [Concomitant]

REACTIONS (2)
  - HYPERTENSION [None]
  - NAUSEA [None]
